FAERS Safety Report 4551298-0 (Version None)
Quarter: 2005Q1

REPORT INFORMATION
  Report Type: 
  Country: None (occurrence: None)
  Receive Date: 20050110
  Receipt Date: 20041229
  Transmission Date: 20050727
  Serious: Yes (Other)
  Sender: FDA-Public Use
  Company Number: 200416366BCC

PATIENT
  Sex: Male
  Weight: 86.1834 kg

DRUGS (2)
  1. ALEVE [Suspect]
     Indication: ARTHRALGIA
     Dosage: 660 MG ORAL
     Route: 048
  2. STOOL SOFTENER [Concomitant]

REACTIONS (2)
  - BRAIN ABSCESS [None]
  - THROMBOSIS [None]
